FAERS Safety Report 6496289-8 (Version None)
Quarter: 2009Q4

REPORT INFORMATION
  Report Type: 
  Country: None (occurrence: None)
  Receive Date: 20091214
  Receipt Date: 20091204
  Transmission Date: 20100525
  Serious: Yes (Life-Threatening, Hospitalization, Other)
  Sender: FDA-Public Use
  Company Number: US-MILLENNIUM PHARMACEUTICALS, INC.-2009-04723

PATIENT

DRUGS (8)
  1. VELCADE [Suspect]
     Indication: GLIOBLASTOMA
     Dosage: 1.3 MG/M2, UNK
     Dates: start: 20091106, end: 20091106
  2. TEMODAR [Suspect]
     Indication: GLIOBLASTOMA
  3. OXYCONTIN [Concomitant]
     Indication: DRUG USE FOR UNKNOWN INDICATION
     Dosage: 15 MG, UNK
  4. ROXANOL [Concomitant]
     Indication: DRUG USE FOR UNKNOWN INDICATION
  5. ZOFRAN [Concomitant]
     Indication: DRUG USE FOR UNKNOWN INDICATION
     Dosage: 9 MG, UNK
  6. COMPAZINE [Concomitant]
     Indication: DRUG USE FOR UNKNOWN INDICATION
  7. DEXAMETHASONE TAB [Concomitant]
     Indication: DRUG USE FOR UNKNOWN INDICATION
     Dosage: 8 MG, UNK
  8. LOVENOX [Concomitant]
     Indication: DEEP VEIN THROMBOSIS
     Dosage: 60 MG, UNK
     Route: 058

REACTIONS (2)
  - CEREBRAL HAEMORRHAGE [None]
  - INTRAVENTRICULAR HAEMORRHAGE [None]
